FAERS Safety Report 15658865 (Version 2)
Quarter: 2018Q4

REPORT INFORMATION
  Report Type: Report from Study
  Country: None (occurrence: US)
  Receive Date: 20181126
  Receipt Date: 20181203
  Transmission Date: 20190205
  Serious: Yes (Other)
  Sender: FDA-Public Use
  Company Number: US-ABBVIE-18K-163-2564863-00

PATIENT
  Sex: Female
  Weight: 54.48 kg

DRUGS (14)
  1. CHILDREN CLARITIN ALLERGY [Concomitant]
     Active Substance: LORATADINE
     Indication: SNEEZING
  2. CHILDREN CLARITIN ALLERGY [Concomitant]
     Active Substance: LORATADINE
     Indication: THROAT IRRITATION
  3. HUMIRA [Suspect]
     Active Substance: ADALIMUMAB
     Indication: RHEUMATOID ARTHRITIS
     Route: 058
     Dates: start: 2012
  4. LEFLUNOMIDE. [Concomitant]
     Active Substance: LEFLUNOMIDE
     Indication: RHEUMATOID ARTHRITIS
  5. CELECOXIB. [Concomitant]
     Active Substance: CELECOXIB
     Indication: INFLAMMATION
  6. CHILDREN CLARITIN ALLERGY [Concomitant]
     Active Substance: LORATADINE
     Indication: LACRIMATION INCREASED
  7. CHILDREN CLARITIN ALLERGY [Concomitant]
     Active Substance: LORATADINE
     Indication: EYE PRURITUS
  8. CHILDREN^S SUDAFED PE COLD + COUGH [Concomitant]
     Indication: NASAL CONGESTION
  9. CHILDREN^S SUDAFED PE COLD + COUGH [Concomitant]
     Indication: COUGH
  10. CHILDREN CLARITIN ALLERGY [Concomitant]
     Active Substance: LORATADINE
     Indication: RHINORRHOEA
  11. IRON [Concomitant]
     Active Substance: IRON
     Indication: MINERAL SUPPLEMENTATION
  12. HUMIRA [Suspect]
     Active Substance: ADALIMUMAB
     Indication: RHEUMATOID ARTHRITIS
     Route: 058
     Dates: start: 2018
  13. VITAMIN B6 [Suspect]
     Active Substance: PYRIDOXINE HYDROCHLORIDE
     Indication: PRODUCT USED FOR UNKNOWN INDICATION
     Route: 065
  14. CHILDREN^S SUDAFED PE COLD + COUGH [Concomitant]
     Indication: PARANASAL SINUS DISCOMFORT

REACTIONS (8)
  - Dry eye [Not Recovered/Not Resolved]
  - Ageusia [Not Recovered/Not Resolved]
  - Cataract [Not Recovered/Not Resolved]
  - Nervousness [Recovered/Resolved]
  - Blood iron decreased [Recovered/Resolved]
  - Vision blurred [Recovering/Resolving]
  - Intentional dose omission [Unknown]
  - Dry eye [Recovered/Resolved]

NARRATIVE: CASE EVENT DATE: 2016
